FAERS Safety Report 17954253 (Version 20)
Quarter: 2025Q2

REPORT INFORMATION
  Report Type: Spontaneous
  Country: DE (occurrence: DE)
  Receive Date: 20200629
  Receipt Date: 20250427
  Transmission Date: 20250717
  Serious: Yes (Other)
  Sender: BIOGEN
  Company Number: DE-BIOGEN-2020BI00891482

PATIENT
  Age: 59 Year
  Sex: Male

DRUGS (15)
  1. SPINRAZA [Suspect]
     Active Substance: NUSINERSEN
     Indication: Spinal muscular atrophy
     Dosage: 12 MILLIGRAM, Q 4 MONTHS
     Route: 050
     Dates: start: 20190527
  2. SPINRAZA [Suspect]
     Active Substance: NUSINERSEN
     Dosage: 12 MILLIGRAM, Q 4 MONTHS
     Route: 050
     Dates: start: 20190524
  3. SPINRAZA [Suspect]
     Active Substance: NUSINERSEN
     Dosage: 12 MILLIGRAM, Q 4 MONTHS
     Route: 050
     Dates: start: 20190527
  4. SPINRAZA [Suspect]
     Active Substance: NUSINERSEN
     Dosage: 12 MILLIGRAM, Q 4 MONTHS
     Route: 050
     Dates: start: 20190524
  5. RAMIPRIL [Suspect]
     Active Substance: RAMIPRIL
     Indication: Blood pressure increased
     Route: 050
     Dates: start: 202003, end: 202003
  6. METOPROLOL SUCCINATE [Suspect]
     Active Substance: METOPROLOL SUCCINATE
     Indication: Blood pressure increased
     Route: 050
     Dates: start: 2020, end: 202007
  7. CLINDAMYCIN HYDROCHLORIDE [Suspect]
     Active Substance: CLINDAMYCIN HYDROCHLORIDE
     Indication: Osteitis
     Route: 050
     Dates: start: 20250325, end: 20250403
  8. OMEPRAZOLE [Concomitant]
     Active Substance: OMEPRAZOLE
     Indication: Gastritis
     Route: 050
  9. OMEPRAZOLE [Concomitant]
     Active Substance: OMEPRAZOLE
     Route: 050
  10. MORPHINE SULFATE [Concomitant]
     Active Substance: MORPHINE SULFATE
     Indication: Pain
     Route: 050
  11. MORPHINE SULFATE [Concomitant]
     Active Substance: MORPHINE SULFATE
     Route: 050
  12. AMITRIPTYLINE [Concomitant]
     Active Substance: AMITRIPTYLINE
     Indication: Pain
     Route: 050
  13. AMITRIPTYLINE [Concomitant]
     Active Substance: AMITRIPTYLINE
     Route: 050
  14. COMIRNATY [Concomitant]
     Indication: COVID-19 prophylaxis
     Route: 050
  15. COMIRNATY [Concomitant]
     Route: 050

REACTIONS (10)
  - Hypertension [Recovered/Resolved]
  - Eye haemorrhage [Recovered/Resolved]
  - Dizziness [Recovered/Resolved]
  - Fatigue [Recovered/Resolved]
  - Muscular weakness [Recovered/Resolved]
  - Migraine with aura [Recovered/Resolved]
  - Exertional headache [Not Recovered/Not Resolved]
  - Epistaxis [Recovered/Resolved]
  - Head discomfort [Unknown]
  - Post lumbar puncture syndrome [Recovered/Resolved]

NARRATIVE: CASE EVENT DATE: 20190924
